FAERS Safety Report 6644805-5 (Version None)
Quarter: 2010Q1

REPORT INFORMATION
  Report Type: 
  Country: None (occurrence: None)
  Receive Date: 20100322
  Receipt Date: 20100310
  Transmission Date: 20100710
  Serious: Yes (Death, Other)
  Sender: FDA-Public Use
  Company Number: JP-PFIZER INC-2010019397

PATIENT
  Age: 80 Year
  Sex: Female
  Weight: 40 kg

DRUGS (8)
  1. ZYVOX [Suspect]
     Indication: STAPHYLOCOCCAL SEPSIS
     Dosage: 600 MG, 1X/DAY
     Route: 042
     Dates: start: 20100131, end: 20100201
  2. MEROPEN [Concomitant]
     Dosage: UNK
     Route: 042
     Dates: start: 20100129, end: 20100130
  3. METILON [Concomitant]
     Route: 030
     Dates: start: 20100129
  4. STRONG NEO-MINOPHAGEN C [Concomitant]
     Route: 042
     Dates: start: 20100129
  5. NEOPHYLLIN [Concomitant]
     Route: 042
     Dates: start: 20100201
  6. SAXIZON [Concomitant]
     Route: 042
     Dates: start: 20100201
  7. ADONA [Concomitant]
     Route: 042
     Dates: start: 20100201
  8. TRANSAMIN [Concomitant]
     Route: 042
     Dates: start: 20100201

REACTIONS (4)
  - GENERALISED OEDEMA [None]
  - PLATELET COUNT DECREASED [None]
  - PULMONARY HAEMORRHAGE [None]
  - RESPIRATORY ARREST [None]
